FAERS Safety Report 10718043 (Version 1)
Quarter: 2015Q1

REPORT INFORMATION
  Report Type: Spontaneous
  Country: TR (occurrence: TR)
  Receive Date: 20150117
  Receipt Date: 20150117
  Transmission Date: 20150721
  Serious: Yes (Other)
  Sender: FDA-Public Use
  Company Number: TR-AUROBINDO-AUR-APL-2015-00241

PATIENT
  Age: 29 Year
  Sex: Female

DRUGS (1)
  1. QUETIAPINE [Suspect]
     Active Substance: QUETIAPINE
     Indication: SCHIZOPHRENIA
     Dosage: 600 MG, DAILY
     Route: 065

REACTIONS (7)
  - Speech disorder [Unknown]
  - Hostility [Unknown]
  - Abnormal behaviour [Unknown]
  - Condition aggravated [Unknown]
  - Negativism [Unknown]
  - Hallucination [Unknown]
  - Delusion [Unknown]
